FAERS Safety Report 16712873 (Version 2)
Quarter: 2019Q3

REPORT INFORMATION
  Report Type: Spontaneous
  Country: US (occurrence: US)
  Receive Date: 20190817
  Receipt Date: 20190831
  Transmission Date: 20191004
  Serious: Yes (Other)
  Sender: FDA-Public Use
  Company Number: US-AUROBINDO-AUR-APL-2019-054025

PATIENT

DRUGS (9)
  1. CLONAZEPAM. [Concomitant]
     Active Substance: CLONAZEPAM
     Indication: PRODUCT USED FOR UNKNOWN INDICATION
     Dosage: UNK
     Route: 065
  2. DULOXETINE DELAYED-RELEASE CAPSULES USP 30 MG [Interacting]
     Active Substance: DULOXETINE
     Indication: ANXIETY
     Dosage: 30 MILLIGRAM, DAILY
     Route: 048
     Dates: start: 2017
  3. DULOXETINE DELAYED-RELEASE CAPSULES USP 20 MG [Suspect]
     Active Substance: DULOXETINE
     Indication: ANXIETY
     Dosage: 20 MILLIGRAM, DAILY
     Route: 048
     Dates: start: 2017
  4. DULOXETINE DELAYED-RELEASE CAPSULES USP 60 MG [Interacting]
     Active Substance: DULOXETINE HYDROCHLORIDE
     Indication: ANXIETY
     Dosage: 60 MILLIGRAM, DAILY
     Route: 048
     Dates: start: 2017
  5. PIMOZIDE. [Suspect]
     Active Substance: PIMOZIDE
     Indication: PRODUCT USED FOR UNKNOWN INDICATION
     Dosage: UNK
     Route: 065
  6. DULOXETINE DELAYED-RELEASE CAPSULES USP 20 MG [Interacting]
     Active Substance: DULOXETINE
     Indication: DEPRESSION
     Dosage: 40 MILLIGRAM, ONCE A DAY, (2 OF THE 20 MG CAPSULES DAILY)
     Route: 048
     Dates: start: 2017
  7. DULOXETINE DELAYED-RELEASE CAPSULES USP 30 MG [Interacting]
     Active Substance: DULOXETINE
     Indication: DEPRESSION
  8. DULOXETINE DELAYED-RELEASE CAPSULES USP 60 MG [Interacting]
     Active Substance: DULOXETINE HYDROCHLORIDE
     Indication: DEPRESSION
  9. DICYCLOMINE [Interacting]
     Active Substance: DICYCLOMINE HYDROCHLORIDE
     Indication: GASTROINTESTINAL DISORDER
     Dosage: UNK
     Route: 065

REACTIONS (14)
  - Urticaria [Recovering/Resolving]
  - Depression [Recovering/Resolving]
  - Blood prolactin increased [Recovering/Resolving]
  - Feeling abnormal [Recovering/Resolving]
  - Malignant melanoma [Recovering/Resolving]
  - Abnormal behaviour [Recovered/Resolved]
  - Diarrhoea [Recovering/Resolving]
  - Fear [Recovering/Resolving]
  - Weight decreased [Recovering/Resolving]
  - Gastrointestinal disorder [Recovering/Resolving]
  - Memory impairment [Recovering/Resolving]
  - Mydriasis [Recovering/Resolving]
  - Constipation [Recovering/Resolving]
  - Drug interaction [Recovering/Resolving]
